FAERS Safety Report 5626075-X (Version None)
Quarter: 2008Q1

REPORT INFORMATION
  Report Type: 
  Country: None (occurrence: None)
  Receive Date: 20080214
  Receipt Date: 20080212
  Transmission Date: 20080703
  Serious: Yes (Life-Threatening)
  Sender: FDA-Public Use
  Company Number: FR-BRISTOL-MYERS SQUIBB COMPANY-14074843

PATIENT
  Sex: Female

DRUGS (9)
  1. IRBESARTAN [Suspect]
     Dates: start: 20070701, end: 20070905
  2. ACETAMINOPHEN [Suspect]
     Indication: PHARYNGOLARYNGEAL PAIN
     Dates: start: 20070903, end: 20070905
  3. PENTASA [Suspect]
     Indication: COLITIS COLLAGENOUS
     Dates: end: 20070905
  4. ORELOX [Suspect]
     Indication: PHARYNGOLARYNGEAL PAIN
     Dates: start: 20070903, end: 20070905
  5. HEXASPRAY [Suspect]
     Indication: PHARYNGOLARYNGEAL PAIN
     Dosage: 1 DOSAGE FORM = 4PUFFS
     Route: 055
     Dates: start: 20070903, end: 20070905
  6. SOLUPRED [Suspect]
     Dates: start: 20070903, end: 20070905
  7. VASTAREL [Suspect]
     Dates: start: 20070701, end: 20070905
  8. LECTIL [Suspect]
     Dates: start: 20070701, end: 20070905
  9. LEXOMIL [Suspect]
     Dates: start: 20070701

REACTIONS (1)
  - AGRANULOCYTOSIS [None]
